FAERS Safety Report 4734313-0 (Version None)
Quarter: 2005Q3

REPORT INFORMATION
  Report Type: 
  Country: None (occurrence: None)
  Receive Date: 20050804
  Receipt Date: 20050711
  Transmission Date: 20060218
  Serious: Yes (Hospitalization)
  Sender: FDA-Public Use
  Company Number: JP-SP-2005-01333

PATIENT
  Age: 68 Year
  Sex: Female

DRUGS (3)
  1. IMMUCYST [Suspect]
     Indication: BLADDER CANCER
     Route: 043
     Dates: start: 20050425, end: 20050602
  2. IMMUCYST [Suspect]
     Route: 043
     Dates: start: 20050425, end: 20050602
  3. IMMUCYST [Suspect]
     Route: 043
     Dates: start: 20050425, end: 20050602

REACTIONS (6)
  - ALANINE AMINOTRANSFERASE INCREASED [None]
  - ASPARTATE AMINOTRANSFERASE INCREASED [None]
  - ECZEMA [None]
  - FATIGUE [None]
  - HEPATIC FUNCTION ABNORMAL [None]
  - PYREXIA [None]
